FAERS Safety Report 9313981 (Version 1)
Quarter: 2013Q2

REPORT INFORMATION
  Report Type: Spontaneous
  Country: US (occurrence: US)
  Receive Date: 20130529
  Receipt Date: 20130529
  Transmission Date: 20140414
  Serious: No
  Sender: FDA-Public Use
  Company Number: US-009507513-1305USA009892

PATIENT
  Age: 20 Year
  Sex: Female
  Weight: 63.49 kg

DRUGS (1)
  1. IMPLANON [Suspect]
     Indication: CONTRACEPTION
     Dosage: 1 DF, 1 ROD FOR 3 YEARS
     Route: 059
     Dates: start: 20091216

REACTIONS (12)
  - Dyspnoea [Unknown]
  - Muscle spasms [Unknown]
  - Panic attack [Unknown]
  - Joint swelling [Unknown]
  - Blood potassium decreased [Unknown]
  - Weight decreased [Unknown]
  - Nausea [Unknown]
  - Back pain [Unknown]
  - Hypoaesthesia [Unknown]
  - Fatigue [Unknown]
  - Asthenia [Unknown]
  - Incorrect drug administration duration [Unknown]
